FAERS Safety Report 12311572 (Version 1)
Quarter: 2016Q2

REPORT INFORMATION
  Report Type: Spontaneous
  Country: GR (occurrence: GR)
  Receive Date: 20160427
  Receipt Date: 20160427
  Transmission Date: 20160815
  Serious: Yes (Hospitalization)
  Sender: FDA-Public Use
  Company Number: GR-SA-2016SA078072

PATIENT
  Age: 87 Year
  Sex: Female
  Weight: 40 kg

DRUGS (2)
  1. LOSARTAN. [Concomitant]
     Active Substance: LOSARTAN
  2. FUROSEMIDE. [Suspect]
     Active Substance: FUROSEMIDE
     Route: 065

REACTIONS (19)
  - Hypernatraemia [Recovered/Resolved]
  - C-reactive protein increased [Recovered/Resolved]
  - Mucosal dryness [Unknown]
  - Blood potassium increased [Recovered/Resolved]
  - Blood uric acid increased [Recovered/Resolved]
  - Dehydration [Recovering/Resolving]
  - Skin turgor decreased [Unknown]
  - Hyperosmolar state [Recovered/Resolved]
  - Acute kidney injury [Recovered/Resolved]
  - Blood creatinine increased [Recovered/Resolved]
  - Blood chloride increased [Recovered/Resolved]
  - Anion gap increased [Unknown]
  - Somnolence [Recovering/Resolving]
  - Blood urea increased [Recovered/Resolved]
  - Metabolic acidosis [Unknown]
  - Hypotension [Recovering/Resolving]
  - Red blood cell sedimentation rate increased [Recovered/Resolved]
  - Hypoalbuminaemia [Recovered/Resolved]
  - Sluggishness [Recovering/Resolving]
